FAERS Safety Report 9393945 (Version 1)
Quarter: 2013Q3

REPORT INFORMATION
  Report Type: Spontaneous
  Country: CN (occurrence: CN)
  Receive Date: 20130710
  Receipt Date: 20130710
  Transmission Date: 20140515
  Serious: Yes (Other)
  Sender: FDA-Public Use
  Company Number: CN-BAXTER-2013BAX025785

PATIENT
  Age: 22 Year
  Sex: Female

DRUGS (11)
  1. QIFUMEI [Suspect]
     Indication: MAINTENANCE OF ANAESTHESIA
  2. NITROUS OXIDE [Suspect]
     Indication: MAINTENANCE OF ANAESTHESIA
  3. PROPOFOL [Suspect]
     Indication: INDUCTION OF ANAESTHESIA
     Route: 065
  4. FENTANYL [Suspect]
     Indication: INDUCTION OF ANAESTHESIA
     Route: 065
  5. SUCCINYLCHOLINE [Suspect]
     Indication: INDUCTION OF ANAESTHESIA
     Route: 065
  6. NITROPRUSSIDE [Suspect]
     Indication: BLOOD PRESSURE MANAGEMENT
     Dosage: 0.01-1.0 MICROGRAMS/KG/MIN
     Route: 065
  7. NITROGLYCERIN [Suspect]
     Indication: BLOOD PRESSURE MANAGEMENT
     Dosage: UNSPECIFIED BOLUSES
  8. REMIFENTANYL [Suspect]
     Indication: PAIN MANAGEMENT
     Route: 065
  9. NOREPINEPHRINE [Suspect]
     Indication: BLOOD PRESSURE MANAGEMENT
     Route: 065
  10. LABETALOL [Concomitant]
     Indication: PHAEOCHROMOCYTOMA
     Route: 065
  11. PHENOXYBENZAMINE                   /00063202/ [Concomitant]
     Indication: PHAEOCHROMOCYTOMA
     Route: 065

REACTIONS (7)
  - Premature delivery [Recovered/Resolved]
  - Hypotension [Recovered/Resolved]
  - Tachycardia [Recovered/Resolved]
  - Exposure during pregnancy [Recovered/Resolved]
  - Caesarean section [None]
  - No therapeutic response [None]
  - Post procedural complication [None]
